FAERS Safety Report 13269917 (Version 2)
Quarter: 2017Q1

REPORT INFORMATION
  Report Type: Report from Study
  Country: EG (occurrence: EG)
  Receive Date: 20170224
  Receipt Date: 20170307
  Transmission Date: 20170428
  Serious: Yes (Other)
  Sender: FDA-Public Use
  Company Number: PHHY2017EG027625

PATIENT
  Age: 38 Year
  Sex: Male

DRUGS (2)
  1. PANADOL [Concomitant]
     Active Substance: ACETAMINOPHEN
     Indication: PRODUCT USED FOR UNKNOWN INDICATION
     Route: 065
  2. GILENYA [Suspect]
     Active Substance: FINGOLIMOD HYDROCHLORIDE
     Indication: MULTIPLE SCLEROSIS
     Dosage: 0.5 OT, QD
     Route: 065
     Dates: start: 20170126

REACTIONS (5)
  - Pain in extremity [Not Recovered/Not Resolved]
  - Hypoaesthesia [Recovering/Resolving]
  - Abdominal pain [Not Recovered/Not Resolved]
  - Muscle spasms [Not Recovered/Not Resolved]
  - Pain [Recovering/Resolving]

NARRATIVE: CASE EVENT DATE: 20170219
